FAERS Safety Report 23506440 (Version 1)
Quarter: 2024Q1

REPORT INFORMATION
  Report Type: Spontaneous
  Country: US (occurrence: US)
  Receive Date: 20240209
  Receipt Date: 20240209
  Transmission Date: 20240409
  Serious: No
  Sender: FDA-Public Use
  Company Number: US-IBSA PHARMA INC.-2023IBS000188

PATIENT

DRUGS (2)
  1. TIROSINT-SOL [Suspect]
     Active Substance: LEVOTHYROXINE SODIUM
     Indication: Thyroid hormone replacement therapy
     Dosage: 75 MICROGRAM ON SOME DAYS
     Route: 048
  2. TIROSINT-SOL [Suspect]
     Active Substance: LEVOTHYROXINE SODIUM
     Dosage: 63 MICROGRAM ON SOME DAYS BY COMBINING 13 MCG AND 50 MCG AMPOULES
     Route: 048

REACTIONS (3)
  - Blood thyroid stimulating hormone increased [Unknown]
  - Product use complaint [Unknown]
  - Product quality issue [Unknown]
